FAERS Safety Report 10231094 (Version 1)
Quarter: 2014Q2

REPORT INFORMATION
  Report Type: Spontaneous
  Country: US (occurrence: US)
  Receive Date: 20140611
  Receipt Date: 20140611
  Transmission Date: 20141212
  Serious: Yes (Other)
  Sender: FDA-Public Use
  Company Number: US-BRISTOL-MYERS SQUIBB COMPANY-20940318

PATIENT
  Age: 49 Year
  Sex: Male

DRUGS (3)
  1. REYATAZ [Suspect]
     Indication: HIV INFECTION
     Dosage: TABS?600/300 MG
  2. EPZICOM [Suspect]
     Indication: HIV INFECTION
     Dosage: 600/300 MG
  3. NORVIR [Suspect]
     Indication: HIV INFECTION

REACTIONS (5)
  - Stevens-Johnson syndrome [Unknown]
  - Cardiac disorder [Unknown]
  - Visual acuity reduced [Unknown]
  - Disability [Unknown]
  - Drug dose omission [Unknown]
